FAERS Safety Report 6502022-3 (Version None)
Quarter: 2009Q4

REPORT INFORMATION
  Report Type: 
  Country: None (occurrence: None)
  Receive Date: 20091216
  Receipt Date: 20091215
  Transmission Date: 20100525
  Serious: Yes (Hospitalization)
  Sender: FDA-Public Use
  Company Number: SK-ROCHE-672237

PATIENT
  Sex: Male

DRUGS (6)
  1. BEVACIZUMAB [Suspect]
     Dosage: FORM: INFUSION
     Route: 065
     Dates: start: 20091119
  2. BEVACIZUMAB [Suspect]
     Route: 065
     Dates: start: 20091210
  3. CAMPTOSAR [Concomitant]
     Dosage: DRUG AS CAMPTO INF (IRINOTECANUM);FORM: INFUSION
     Route: 042
     Dates: start: 20091119
  4. FLUOROURACIL [Concomitant]
     Dosage: DRUG AS 5-FU INF;FORM: INFUSION
     Route: 042
     Dates: start: 20091119
  5. MONOSAN [Concomitant]
     Dosage: DRUG AS MONOSAN TBL (ISOSORBID MONONITRATUM), FREQUENCY AS 1 TBL DAILY
     Route: 048
     Dates: start: 20050101
  6. ENAP [Concomitant]
     Dosage: DRUG AS ENAP TBL (ENALAPRILUM) AND FREQUENCY AS 1 TBL DAILY
     Route: 048
     Dates: start: 20050101

REACTIONS (1)
  - CEREBELLAR SYNDROME [None]
